FAERS Safety Report 20090492 (Version 1)
Quarter: 2021Q4

REPORT INFORMATION
  Report Type: Spontaneous
  Country: US (occurrence: None)
  Receive Date: 20211118
  Receipt Date: 20211118
  Transmission Date: 20220303
  Serious: Yes (Other)
  Sender: FDA-Public Use
  Company Number: None

PATIENT
  Age: 33 Year
  Sex: Male

DRUGS (1)
  1. ODOR EATERS MEDICATED FOOT POWDER [Suspect]
     Active Substance: MENTHOL

REACTIONS (1)
  - Rash [None]

NARRATIVE: CASE EVENT DATE: 20211107
